FAERS Safety Report 8362682-1 (Version None)
Quarter: 2012Q2

REPORT INFORMATION
  Report Type: 
  Country: None (occurrence: None)
  Receive Date: 20120516
  Receipt Date: 20120312
  Transmission Date: 20120825
  Serious: No
  Sender: FDA-Public Use
  Company Number: US-MYLANLABS-2011S1021763

PATIENT
  Sex: Female

DRUGS (2)
  1. BUPROPION HYDROCHLORIDE [Suspect]
     Route: 048
     Dates: end: 20120101
  2. BUPROPION HYDROCHLORIDE [Suspect]
     Indication: DEPRESSION
     Route: 048
     Dates: start: 20110801

REACTIONS (6)
  - BRUXISM [None]
  - COGNITIVE DISORDER [None]
  - TOOTH FRACTURE [None]
  - DEPRESSION [None]
  - ANXIETY [None]
  - NERVOUSNESS [None]
